FAERS Safety Report 4507072-4 (Version None)
Quarter: 2004Q4

REPORT INFORMATION
  Report Type: 
  Country: None (occurrence: None)
  Receive Date: 20041117
  Receipt Date: 20041111
  Transmission Date: 20050328
  Serious: Yes (Death)
  Sender: FDA-Public Use
  Company Number: MK200411-0144-1

PATIENT
  Age: 88 Year
  Sex: Female

DRUGS (2)
  1. MEPERIDINE HCL [Suspect]
     Indication: PAIN
     Dosage: 300MG, ONE TIME
     Dates: start: 19870603, end: 19870604
  2. PROMETHAZINE [Concomitant]

REACTIONS (5)
  - DYSPNOEA [None]
  - INCOHERENT [None]
  - SOMNOLENCE [None]
  - THERAPEUTIC AGENT TOXICITY [None]
  - VICTIM OF CRIME [None]
